FAERS Safety Report 11807696 (Version 1)
Quarter: 2015Q4

REPORT INFORMATION
  Report Type: Spontaneous
  Country: US (occurrence: US)
  Receive Date: 20151207
  Receipt Date: 20151207
  Transmission Date: 20160305
  Serious: Yes (Other)
  Sender: FDA-Public Use
  Company Number: US-UCBSA-2015038852

PATIENT
  Sex: Male

DRUGS (4)
  1. SKY [Concomitant]
     Indication: PRODUCT USED FOR UNKNOWN INDICATION
     Dosage: UNK
  2. KEPPRA [Suspect]
     Active Substance: LEVETIRACETAM
     Dosage: DOSE WAS SLOWLY LOWERED IT TO 6000MG DAILY
     Route: 048
     Dates: start: 201509
  3. KEPPRA [Suspect]
     Active Substance: LEVETIRACETAM
     Dosage: 10000MG/ DAILY
     Route: 048
  4. KEPPRA [Suspect]
     Active Substance: LEVETIRACETAM
     Indication: EPILEPSY
     Dosage: 9000 MG/ DAILY
     Route: 048

REACTIONS (10)
  - Overdose [Unknown]
  - Off label use [Unknown]
  - Anger [Unknown]
  - Weight decreased [Unknown]
  - Somnolence [Recovering/Resolving]
  - Arthropathy [Unknown]
  - Foot fracture [Unknown]
  - Balance disorder [Unknown]
  - Weight increased [Unknown]
  - Diplopia [Unknown]

NARRATIVE: CASE EVENT DATE: 2002
